FAERS Safety Report 14481909 (Version 3)
Quarter: 2018Q1

REPORT INFORMATION
  Report Type: Spontaneous
  Country: FR (occurrence: FR)
  Receive Date: 20180202
  Receipt Date: 20180228
  Transmission Date: 20180509
  Serious: Yes (Disabling, Other)
  Sender: FDA-Public Use
  Company Number: PHHY2018FR015594

PATIENT
  Age: 25 Year
  Sex: Male
  Weight: 54 kg

DRUGS (4)
  1. COSENTYX [Suspect]
     Active Substance: SECUKINUMAB
     Indication: PSORIASIS
     Dosage: 1 DF, QMO
     Route: 058
     Dates: start: 20170719
  2. INFLUENZA VACCINE [Suspect]
     Active Substance: INFLUENZA VIRUS VACCINE
     Indication: PRODUCT USED FOR UNKNOWN INDICATION
     Dosage: UNK
     Route: 065
  3. TAKADOL [Concomitant]
     Active Substance: TRAMADOL
     Indication: ARTHRALGIA
     Dosage: PUNCTUAL
     Route: 065
     Dates: start: 2015
  4. SPIFEN [Concomitant]
     Active Substance: IBUPROFEN
     Indication: ARTHRALGIA
     Dosage: PUNCTUAL
     Route: 065
     Dates: start: 2015

REACTIONS (18)
  - White blood cell count increased [Unknown]
  - Total cholesterol/HDL ratio increased [Unknown]
  - Weight increased [Unknown]
  - Red blood cell count decreased [Unknown]
  - Asthenia [Recovered/Resolved]
  - Hypertriglyceridaemia [Recovered/Resolved]
  - Hyperleukocytosis [Recovering/Resolving]
  - Spider naevus [Unknown]
  - Blood glucose increased [Unknown]
  - Pyrexia [Recovered/Resolved]
  - Arthralgia [Unknown]
  - Influenza like illness [Recovered/Resolved]
  - Hypercholesterolaemia [Recovering/Resolving]
  - Neutrophil count increased [Unknown]
  - Lymphocyte count increased [Unknown]
  - Condition aggravated [Recovering/Resolving]
  - Monocyte count increased [Unknown]
  - Inappropriate schedule of drug administration [Unknown]

NARRATIVE: CASE EVENT DATE: 20170719
